FAERS Safety Report 21884563 (Version 1)
Quarter: 2023Q1

REPORT INFORMATION
  Report Type: Spontaneous
  Country: US (occurrence: None)
  Receive Date: 20230118
  Receipt Date: 20230118
  Transmission Date: 20230418
  Serious: No
  Sender: FDA-Public Use
  Company Number: None

PATIENT
  Age: 71 Year
  Sex: Female

DRUGS (1)
  1. COSENTYX [Suspect]
     Active Substance: SECUKINUMAB
     Indication: Polyarthritis
     Dosage: FREQUENCY : MONTHLY;?
     Route: 058
     Dates: start: 202105

REACTIONS (1)
  - Sialoadenitis [None]
